FAERS Safety Report 7528318-4 (Version None)
Quarter: 2011Q2

REPORT INFORMATION
  Report Type: 
  Country: None (occurrence: None)
  Receive Date: 20110607
  Receipt Date: 20110531
  Transmission Date: 20111010
  Serious: Yes (Other)
  Sender: FDA-Public Use
  Company Number: IE-US-EMD SERONO, INC.-230057J09IRL

PATIENT
  Sex: Male

DRUGS (2)
  1. REBIF [Suspect]
     Dates: start: 20070724
  2. REBIF [Suspect]
     Indication: RELAPSING-REMITTING MULTIPLE SCLEROSIS
     Dates: start: 20070704

REACTIONS (3)
  - INJECTION SITE ERYTHEMA [None]
  - PAIN IN EXTREMITY [None]
  - MYOCARDIAL INFARCTION [None]
